FAERS Safety Report 11353129 (Version 1)
Quarter: 2015Q3

REPORT INFORMATION
  Report Type: Spontaneous
  Country: US (occurrence: US)
  Receive Date: 20150807
  Receipt Date: 20150807
  Transmission Date: 20151125
  Serious: No
  Sender: FDA-Public Use
  Company Number: US-JNJFOC-20150105110

PATIENT
  Age: 72 Year
  Sex: Female
  Weight: 59.88 kg

DRUGS (6)
  1. WOMENS ROGAINE EXTRA STRENGTH [Suspect]
     Active Substance: MINOXIDIL
     Route: 061
  2. WOMENS ROGAINE EXTRA STRENGTH [Suspect]
     Active Substance: MINOXIDIL
     Indication: ALOPECIA
     Dosage: USED FOR ALMOST A MONTH
     Route: 061
     Dates: start: 20141212
  3. MULTIVITAMINS [Concomitant]
     Active Substance: VITAMINS
     Indication: ROUTINE HEALTH MAINTENANCE
     Dosage: FOR MORE THAN 10 YEARS
     Route: 065
  4. FISH OIL OMEGA 3 [Concomitant]
     Indication: CARDIOVASCULAR EVENT PROPHYLAXIS
     Dosage: AT LEAST 3 YEARS
     Route: 065
  5. ANTI-DIABETIC MEDICATION (NOS) [Concomitant]
     Indication: DIABETES MELLITUS
     Route: 065
  6. ECOTRIN [Concomitant]
     Active Substance: ASPIRIN
     Indication: PRODUCT USED FOR UNKNOWN INDICATION
     Dosage: A COUPLE YEARS
     Route: 065

REACTIONS (5)
  - Chest pain [Recovered/Resolved]
  - Breast pain [Recovered/Resolved]
  - Abdominal pain [Recovered/Resolved]
  - Breast discomfort [Recovered/Resolved]
  - Malaise [Recovered/Resolved]
